FAERS Safety Report 18530137 (Version 1)
Quarter: 2020Q4

REPORT INFORMATION
  Report Type: Report from Study
  Country: ZA (occurrence: ZA)
  Receive Date: 20201120
  Receipt Date: 20201120
  Transmission Date: 20210114
  Serious: Yes (Death)
  Sender: FDA-Public Use
  Company Number: ZA-ASTRAZENECA-2020SF52505

PATIENT
  Sex: Female

DRUGS (1)
  1. SYMBICORD [Suspect]
     Active Substance: BUDESONIDE\FORMOTEROL
     Indication: ASTHMA
     Dosage: 160 UG/INHALATION,UNKNOWN UNKNOWN
     Route: 055

REACTIONS (1)
  - Death [Fatal]
